FAERS Safety Report 6648406-4 (Version None)
Quarter: 2010Q1

REPORT INFORMATION
  Report Type: 
  Country: None (occurrence: None)
  Receive Date: 20100324
  Receipt Date: 20100315
  Transmission Date: 20100710
  Serious: Yes (Death)
  Sender: FDA-Public Use
  Company Number: US-CEPHALON-2009020517

PATIENT
  Sex: Female
  Weight: 98 kg

DRUGS (5)
  1. NUVIGIL [Suspect]
     Indication: SOMNOLENCE
     Route: 048
     Dates: start: 20090824
  2. DURAGESIC-100 [Suspect]
     Dates: start: 20080801
  3. CYMBALTA [Concomitant]
     Dates: start: 20080610
  4. LYRICA [Concomitant]
     Dates: start: 20081101
  5. XANAX [Concomitant]

REACTIONS (2)
  - OVERDOSE [None]
  - PULMONARY OEDEMA [None]
